FAERS Safety Report 25277429 (Version 1)
Quarter: 2025Q2

REPORT INFORMATION
  Report Type: Spontaneous
  Country: US (occurrence: None)
  Receive Date: 20250506
  Receipt Date: 20250506
  Transmission Date: 20250717
  Serious: Yes (Other)
  Sender: FDA-CTU
  Company Number: None

PATIENT
  Age: 39 Year

DRUGS (1)
  1. ERIVEDGE [Suspect]
     Active Substance: VISMODEGIB
     Indication: Non-Hodgkin^s lymphoma
     Dates: start: 202505

REACTIONS (1)
  - Off label use [None]

NARRATIVE: CASE EVENT DATE: 20250506
